FAERS Safety Report 5030046-4 (Version None)
Quarter: 2006Q2

REPORT INFORMATION
  Report Type: 
  Country: None (occurrence: None)
  Receive Date: 20060614
  Receipt Date: 20060606
  Transmission Date: 20061013
  Serious: Yes (Hospitalization)
  Sender: FDA-Public Use
  Company Number: 2006072251

PATIENT
  Age: 31 Year
  Sex: Female

DRUGS (1)
  1. DOSTINEX [Suspect]
     Indication: POSTPARTUM DISORDER
     Dosage: (1 TOTAL)

REACTIONS (9)
  - DELUSION [None]
  - ERYTHEMA [None]
  - FEELING HOT [None]
  - HYPERTENSION [None]
  - MANIA [None]
  - OEDEMA [None]
  - POLYDIPSIA [None]
  - TACHYCARDIA [None]
  - THIRST [None]
